FAERS Safety Report 8673828 (Version 4)
Quarter: 2014Q2

REPORT INFORMATION
  Report Type: Report from Study
  Country: JP (occurrence: JP)
  Receive Date: 20120719
  Receipt Date: 20140625
  Transmission Date: 20141212
  Serious: Yes (Other)
  Sender: FDA-Public Use
  Company Number: JP-VERTEX PHARMACEUTICALS INC.-AE-2012-010237

PATIENT
  Age: 54 Year
  Sex: Male

DRUGS (6)
  1. VX-950 (TELAPREVIR) [Suspect]
     Indication: CHRONIC HEPATITIS C
     Dosage: 2250 MG, QD
     Route: 048
     Dates: start: 20120704, end: 20120706
  2. REBETOL [Suspect]
     Indication: CHRONIC HEPATITIS C
     Dosage: 600 MG, QD
     Route: 048
     Dates: start: 20120704
  3. PEGINTRON [Suspect]
     Indication: CHRONIC HEPATITIS C
     Dosage: 100 ?G, QW
     Route: 058
     Dates: start: 20120704
  4. VOLTAREN [Suspect]
     Indication: ADVERSE EVENT
     Dosage: 37.5 MG, QD
     Route: 048
     Dates: start: 20120704
  5. NOVORAPID MIX [Concomitant]
     Dosage: 36 DF, QD
     Route: 058
  6. METGLUCO [Concomitant]
     Dosage: 500 MG, QD
     Route: 048

REACTIONS (1)
  - Erythema [Recovered/Resolved]
